FAERS Safety Report 16325023 (Version 1)
Quarter: 2019Q2

REPORT INFORMATION
  Report Type: Spontaneous
  Country: US (occurrence: US)
  Receive Date: 20190517
  Receipt Date: 20190517
  Transmission Date: 20190711
  Serious: Yes (Hospitalization, Other)
  Sender: FDA-Public Use
  Company Number: US-PFIZER INC-2019198024

PATIENT
  Age: 71 Year
  Sex: Male
  Weight: 75.75 kg

DRUGS (4)
  1. FIBERCON [Suspect]
     Active Substance: CALCIUM POLYCARBOPHIL
     Indication: IRRITABLE BOWEL SYNDROME
     Dosage: 625 MG, 4X/DAY (STARTED APPROX. 3-4 YRS AGO)
     Route: 048
     Dates: end: 201904
  2. METFORMIN [Concomitant]
     Active Substance: METFORMIN HYDROCHLORIDE
     Indication: DIABETES MELLITUS
     Dosage: 1000 MG, 2X/DAY (STARTED ABOUT 6 YEARS AGO)
  3. GLIMEPIRIDE. [Concomitant]
     Active Substance: GLIMEPIRIDE
     Indication: DIABETES MELLITUS
     Dosage: 4 MG, 2X/DAY (STARTED 6 YEARS AGO)
  4. FIBERCON [Suspect]
     Active Substance: CALCIUM POLYCARBOPHIL
     Indication: ABNORMAL FAECES

REACTIONS (2)
  - Nephrolithiasis [Unknown]
  - Blood calcium increased [Unknown]
